FAERS Safety Report 5049336-4 (Version None)
Quarter: 2006Q3

REPORT INFORMATION
  Report Type: 
  Country: None (occurrence: None)
  Receive Date: 20060707
  Receipt Date: 20060627
  Transmission Date: 20061208
  Serious: Yes (Other)
  Sender: FDA-Public Use
  Company Number: S06-USA-02478-01

PATIENT
  Age: 50 Year
  Sex: Female

DRUGS (3)
  1. LEXAPRO [Suspect]
     Indication: NERVOUSNESS
     Dates: start: 20040101, end: 20040101
  2. PEGASYS [Suspect]
     Indication: HEPATITIS C
     Dosage: 180 MCG QW SC
     Route: 058
     Dates: start: 20040102, end: 20040617
  3. RIBAVIRIN [Suspect]
     Indication: HEPATITIS C
     Dosage: 800 MG QD PO
     Route: 048
     Dates: start: 20040102, end: 20040617

REACTIONS (9)
  - AMNESIA [None]
  - ANAEMIA [None]
  - COLITIS ISCHAEMIC [None]
  - HYPERSOMNIA [None]
  - HYPOTHYROIDISM [None]
  - INFECTION [None]
  - MALAISE [None]
  - RASH PRURITIC [None]
  - URTICARIA [None]
